FAERS Safety Report 19525758 (Version 1)
Quarter: 2021Q3

REPORT INFORMATION
  Report Type: Spontaneous
  Country: US (occurrence: US)
  Receive Date: 20210712
  Receipt Date: 20210712
  Transmission Date: 20211014
  Serious: Yes (Death)
  Sender: FDA-Public Use
  Company Number: None

PATIENT
  Age: 66 Year
  Sex: Male

DRUGS (7)
  1. ESBRIET [Suspect]
     Active Substance: PIRFENIDONE
  2. CARVEDILOL. [Concomitant]
     Active Substance: CARVEDILOL
  3. EZETIMBE [Concomitant]
     Active Substance: EZETIMIBE
  4. FEBNOFIBRATE [Concomitant]
  5. ROSUVASTATIN. [Concomitant]
     Active Substance: ROSUVASTATIN
  6. FUROSEMIDE. [Concomitant]
     Active Substance: FUROSEMIDE
  7. PENICILLIN VK [Concomitant]
     Active Substance: PENICILLIN V POTASSIUM

REACTIONS (1)
  - Death [None]

NARRATIVE: CASE EVENT DATE: 20210707
